FAERS Safety Report 12969968 (Version 1)
Quarter: 2016Q4

REPORT INFORMATION
  Report Type: Report from Study
  Country: AU (occurrence: AU)
  Receive Date: 20161123
  Receipt Date: 20161123
  Transmission Date: 20170207
  Serious: Yes (Death, Hospitalization)
  Sender: FDA-Public Use
  Company Number: AU-JNJFOC-20150908739

PATIENT
  Sex: Female
  Weight: 40 kg

DRUGS (11)
  1. MACU-VISION [Concomitant]
  2. VITAMIN C [Concomitant]
     Active Substance: ASCORBIC ACID
  3. IBRUTINIB [Suspect]
     Active Substance: IBRUTINIB
     Indication: CHRONIC LYMPHOCYTIC LEUKAEMIA
     Route: 048
     Dates: start: 20150722
  4. MAGNESIUM [Concomitant]
     Active Substance: MAGNESIUM
  5. ALL OTHER THERAPEUTIC PRODUCTS [Concomitant]
     Active Substance: UNSPECIFIED INGREDIENT
  6. FOLIC ACID. [Concomitant]
     Active Substance: FOLIC ACID
  7. IBRUTINIB [Suspect]
     Active Substance: IBRUTINIB
     Indication: CHRONIC LYMPHOCYTIC LEUKAEMIA
     Dosage: DOSE REDUCED
     Route: 048
     Dates: end: 20150831
  8. IBRUTINIB [Suspect]
     Active Substance: IBRUTINIB
     Indication: CHRONIC LYMPHOCYTIC LEUKAEMIA
     Route: 048
     Dates: start: 20150831, end: 20150908
  9. VITAMIN A [Concomitant]
     Active Substance: VITAMIN A
  10. XALATAN [Concomitant]
     Active Substance: LATANOPROST
     Route: 047
  11. FLUDROCORTISONE [Concomitant]
     Active Substance: FLUDROCORTISONE
     Indication: ORTHOSTATIC HYPOTENSION
     Dates: start: 201501, end: 201509

REACTIONS (3)
  - Abdominal pain [Unknown]
  - Sudden death [Fatal]
  - Diarrhoea [Recovered/Resolved]
